FAERS Safety Report 10651841 (Version 3)
Quarter: 2015Q1

REPORT INFORMATION
  Report Type: Spontaneous
  Country: DE (occurrence: DE)
  Receive Date: 20141215
  Receipt Date: 20150317
  Transmission Date: 20150720
  Serious: Yes (Hospitalization)
  Sender: FDA-Public Use
  Company Number: DE-NOVOPROD-429111

PATIENT
  Age: 29 Year
  Sex: Male
  Weight: 87.5 kg

DRUGS (5)
  1. L-THYROXINE                        /00068001/ [Concomitant]
     Dosage: 125 IN THE MORNING
     Route: 065
  2. HYDROCORTISONE. [Concomitant]
     Active Substance: HYDROCORTISONE
     Dosage: 20 MG, QD (10 MG MORNING+10 MG MIDDAY)
     Route: 065
  3. NORDITROPIN [Suspect]
     Active Substance: SOMATROPIN
     Indication: EMPTY SELLA SYNDROME
  4. NORDITROPIN [Suspect]
     Active Substance: SOMATROPIN
     Indication: HYPOPITUITARISM
     Dosage: 0.3 MG, QD
     Route: 058
     Dates: start: 20130101, end: 201411
  5. NEBIDO [Concomitant]
     Active Substance: TESTOSTERONE UNDECANOATE
     Dosage: EVERY 10 WEEKS INJECTED BY TREATING PHYSICIAN
     Route: 065

REACTIONS (6)
  - Cold sweat [Recovered/Resolved]
  - Addison^s disease [Unknown]
  - Chills [Recovered/Resolved]
  - Extra dose administered [Unknown]
  - Feeling drunk [Recovered/Resolved]
  - Headache [Recovered/Resolved]

NARRATIVE: CASE EVENT DATE: 20140526
